FAERS Safety Report 8132396-1 (Version None)
Quarter: 2012Q1

REPORT INFORMATION
  Report Type: 
  Country: None (occurrence: None)
  Receive Date: 20120213
  Receipt Date: 20120201
  Transmission Date: 20120608
  Serious: Yes (Hospitalization, Other)
  Sender: FDA-Public Use
  Company Number: DE-ELI_LILLY_AND_COMPANY-DE201202000043

PATIENT
  Age: 80 Year
  Sex: Female

DRUGS (4)
  1. FORTEO [Suspect]
     Indication: OSTEOPOROSIS
     Dosage: UNK, QD
     Route: 058
     Dates: start: 20101101
  2. CALCIUM [Concomitant]
  3. VITAMIN D [Concomitant]
  4. CORTISONE ACETATE [Concomitant]

REACTIONS (2)
  - HERPES ZOSTER [None]
  - HOSPITALISATION [None]
